FAERS Safety Report 5213883-2 (Version None)
Quarter: 2007Q1

REPORT INFORMATION
  Report Type: 
  Country: None (occurrence: None)
  Receive Date: 20070117
  Receipt Date: 20070103
  Transmission Date: 20070707
  Serious: Yes (Death)
  Sender: FDA-Public Use
  Company Number: 2006S1009385

PATIENT
  Age: 56 Year
  Sex: Male

DRUGS (8)
  1. CLOZAPINE [Suspect]
     Dosage: 50 MG;QD;PO
     Route: 048
     Dates: end: 20060701
  2. CLOZAPINE [Suspect]
     Dosage: 200 MG;QD;PO; 100 MG;QD;PO
     Route: 048
     Dates: end: 20060701
  3. CLOZAPINE [Suspect]
     Dosage: 200 MG;QD;PO; 100 MG;QD;PO
     Route: 048
     Dates: end: 20060701
  4. METOCLOPRAMIDE [Concomitant]
  5. TEGASEROD [Concomitant]
  6. ISOSORBIDE DINITRATE [Concomitant]
  7. SENNA ALEXANDRINA [Concomitant]
  8. SIMETHICONE [Concomitant]

REACTIONS (1)
  - DEATH [None]
